FAERS Safety Report 25171427 (Version 1)
Quarter: 2025Q2

REPORT INFORMATION
  Report Type: Spontaneous
  Country: US (occurrence: US)
  Receive Date: 20250408
  Receipt Date: 20250408
  Transmission Date: 20250717
  Serious: No
  Sender: ROCHE
  Company Number: US-ROCHE-10000244054

PATIENT
  Age: 42 Year
  Sex: Female
  Weight: 93.0 kg

DRUGS (19)
  1. CELLCEPT [Suspect]
     Active Substance: MYCOPHENOLATE MOFETIL
     Indication: Product used for unknown indication
     Route: 065
  2. TYVASO [Suspect]
     Active Substance: TREPROSTINIL
     Indication: Pulmonary arterial hypertension
     Dosage: 0.6 MG/ML
     Route: 050
     Dates: start: 202409, end: 2024
  3. TYVASO [Suspect]
     Active Substance: TREPROSTINIL
     Route: 050
     Dates: start: 2024, end: 2024
  4. TYVASO [Suspect]
     Active Substance: TREPROSTINIL
     Route: 050
     Dates: start: 2024
  5. TYVASO [Suspect]
     Active Substance: TREPROSTINIL
     Route: 050
     Dates: start: 20240912
  6. TYVASO [Suspect]
     Active Substance: TREPROSTINIL
     Route: 050
     Dates: start: 20240912, end: 2024
  7. OFEV [Suspect]
     Active Substance: NINTEDANIB
     Indication: Idiopathic pulmonary fibrosis
     Route: 048
     Dates: start: 20230722
  8. SEROQUEL [Suspect]
     Active Substance: QUETIAPINE FUMARATE
     Indication: Product used for unknown indication
     Route: 065
  9. INGREZZA [Concomitant]
     Active Substance: VALBENAZINE
  10. AMLODIPINE BESYLATE [Concomitant]
     Active Substance: AMLODIPINE BESYLATE
  11. METOPROLOL TARTRATE [Concomitant]
     Active Substance: METOPROLOL TARTRATE
  12. FAMOTIDINE [Concomitant]
     Active Substance: FAMOTIDINE
  13. DULOXETINE HYDROCHLORIDE [Concomitant]
     Active Substance: DULOXETINE HYDROCHLORIDE
  14. DEPAKOTE [Concomitant]
     Active Substance: DIVALPROEX SODIUM
  15. DOXYCYCLINE HYCLATE [Concomitant]
     Active Substance: DOXYCYCLINE HYCLATE
  16. ALBUTEROL SULFATE [Concomitant]
     Active Substance: ALBUTEROL SULFATE
  17. METFORMIN HYDROCHLORIDE [Concomitant]
     Active Substance: METFORMIN HYDROCHLORIDE
  18. OXYGEN [Concomitant]
     Active Substance: OXYGEN
  19. HYDROCHLOROTHIAZIDE [Concomitant]
     Active Substance: HYDROCHLOROTHIAZIDE

REACTIONS (10)
  - Dyspepsia [Not Recovered/Not Resolved]
  - Cough [Not Recovered/Not Resolved]
  - Feeling abnormal [Unknown]
  - Rhinorrhoea [Unknown]
  - Tremor [Not Recovered/Not Resolved]
  - Dyspnoea exertional [Not Recovered/Not Resolved]
  - Abdominal pain upper [Unknown]
  - Hypersomnia [Unknown]
  - Headache [Unknown]
  - Pain in jaw [Unknown]

NARRATIVE: CASE EVENT DATE: 20240101
